FAERS Safety Report 9470960 (Version 1)
Quarter: 2013Q3

REPORT INFORMATION
  Report Type: Spontaneous
  Country: US (occurrence: US)
  Receive Date: 20130822
  Receipt Date: 20130822
  Transmission Date: 20140515
  Serious: Yes (Life-Threatening, Hospitalization)
  Sender: FDA-Public Use
  Company Number: US-COVIDIEN/TYCO HEALTHCARE/MALLINCKRODT-T201304166

PATIENT
  Age: 48 Year
  Sex: Female

DRUGS (19)
  1. OPTIRAY [Suspect]
     Indication: COMPUTERISED TOMOGRAM ABDOMEN
     Dosage: 120 ML, SINGLE
     Route: 042
     Dates: start: 20130819, end: 20130819
  2. BENADRYL                           /00000402/ [Concomitant]
     Indication: PREMEDICATION
     Dosage: UNK
  3. PREDNISONE [Concomitant]
     Indication: PREMEDICATION
     Dosage: UNK
  4. ZOFRAN                             /00955301/ [Concomitant]
     Indication: PREMEDICATION
     Dosage: UNK
  5. ASPIRIN [Concomitant]
     Dosage: UNK
  6. LIPITOR [Concomitant]
     Dosage: UNK
  7. CHLORTHALIDONE [Concomitant]
     Dosage: UNK
  8. CLONAZEPAM [Concomitant]
     Dosage: UNK
  9. CYMBALTA [Concomitant]
     Dosage: UNK
  10. NOVOLOG [Concomitant]
     Dosage: UNK
  11. LANTUS [Concomitant]
  12. LISINOPRIL [Concomitant]
     Dosage: UNK
  13. LOPRESSOR [Concomitant]
     Dosage: UNK
  14. NIACIN [Concomitant]
     Dosage: UNK
  15. NICOTINE GUM [Concomitant]
     Dosage: UNK
  16. OMEGA 3 FISH OIL [Concomitant]
     Dosage: UNK
  17. PRAZOSIN [Concomitant]
     Dosage: UNK
  18. TOPAMAX [Concomitant]
     Dosage: UNK
  19. TRAZODONE [Concomitant]
     Dosage: UNK

REACTIONS (2)
  - Respiratory failure [Recovering/Resolving]
  - Anaphylactic reaction [Recovering/Resolving]
